FAERS Safety Report 8567685-X (Version None)
Quarter: 2012Q3

REPORT INFORMATION
  Report Type: 
  Country: None (occurrence: None)
  Receive Date: 20120803
  Receipt Date: 20120723
  Transmission Date: 20120928
  Serious: Yes (Congenital Anomaly)
  Sender: FDA-Public Use
  Company Number: US-ELI_LILLY_AND_COMPANY-US201207007520

PATIENT

DRUGS (8)
  1. METFORMIN HYDROCHLORIDE [Concomitant]
     Indication: DIABETES MELLITUS
     Route: 064
  2. CYMBALTA [Suspect]
     Indication: FIBROMYALGIA
     Dosage: 30 MG, QD
     Route: 064
     Dates: start: 20110801, end: 20120319
  3. NOVOLOG [Concomitant]
     Route: 064
  4. PRENATAL VITAMINS                  /01549301/ [Concomitant]
     Dosage: UNK
     Route: 064
     Dates: start: 20120320
  5. METFORMIN HYDROCHLORIDE [Concomitant]
     Route: 064
  6. NOVOLOG [Concomitant]
     Indication: DIABETES MELLITUS
     Route: 064
  7. PRENATAL VITAMINS                  /01549301/ [Concomitant]
     Dosage: UNK
     Route: 064
     Dates: start: 20120320
  8. CYMBALTA [Suspect]
     Dosage: 30 MG, QD
     Route: 064
     Dates: start: 20110801, end: 20120319

REACTIONS (2)
  - FOETAL EXPOSURE DURING PREGNANCY [None]
  - CONGENITAL DIAPHRAGMATIC HERNIA [None]
